FAERS Safety Report 9260815 (Version 1)
Quarter: 2013Q2

REPORT INFORMATION
  Report Type: Spontaneous
  Country: US (occurrence: US)
  Receive Date: 20130429
  Receipt Date: 20130429
  Transmission Date: 20140414
  Serious: Yes (Death)
  Sender: FDA-Public Use
  Company Number: US-MPIJNJ-2013-03130

PATIENT
  Sex: 0

DRUGS (1)
  1. VELCADE [Suspect]
     Indication: LUNG TRANSPLANT REJECTION
     Dosage: 1.3 MG/M2, UNK
     Route: 065

REACTIONS (2)
  - Death [Fatal]
  - Off label use [Unknown]
